FAERS Safety Report 6096592-X (Version None)
Quarter: 2009Q1

REPORT INFORMATION
  Report Type: 
  Country: None (occurrence: None)
  Receive Date: 20090225
  Receipt Date: 20090225
  Transmission Date: 20090719
  Serious: Yes (Life-Threatening, Hospitalization)
  Sender: FDA-Public Use
  Company Number: None

PATIENT
  Sex: Female

DRUGS (12)
  1. LEVAQUIN [Suspect]
     Indication: PNEUMONIA
     Dosage: 5 MG 1 A DAY 047 3-4 DAYS
  2. DYNACIRC [Concomitant]
  3. ZESTRIL [Concomitant]
  4. LASIX [Concomitant]
  5. SLOW-K [Concomitant]
  6. NEXIUM [Concomitant]
  7. FOSAMAX [Concomitant]
  8. LIPITOR [Concomitant]
  9. CELEBREX [Concomitant]
  10. REQUIP [Concomitant]
  11. PREDNISONE [Concomitant]
  12. LYRICA [Concomitant]

REACTIONS (4)
  - ASTHENIA [None]
  - DIARRHOEA [None]
  - MALAISE [None]
  - PULSE ABNORMAL [None]
